FAERS Safety Report 19926546 (Version 1)
Quarter: 2021Q4

REPORT INFORMATION
  Report Type: Spontaneous
  Country: US (occurrence: US)
  Receive Date: 20211007
  Receipt Date: 20211007
  Transmission Date: 20220303
  Serious: Yes (Hospitalization)
  Sender: FDA-Public Use
  Company Number: US-INDIVIOR EUROPE LIMITED-INDV-129370-2021

PATIENT
  Sex: Male

DRUGS (2)
  1. SUBOXONE [Suspect]
     Active Substance: BUPRENORPHINE HYDROCHLORIDE\NALOXONE HYDROCHLORIDE
     Indication: Drug use disorder
     Dosage: ONE AND HALF OF 8/2 MG TABLET A DAY
     Route: 060
     Dates: start: 20210121
  2. SUBOXONE [Suspect]
     Active Substance: BUPRENORPHINE HYDROCHLORIDE\NALOXONE HYDROCHLORIDE
     Dosage: ONE TABLET PER DAY
     Route: 060

REACTIONS (6)
  - Drug detoxification [Recovered/Resolved]
  - Attention deficit hyperactivity disorder [Unknown]
  - Blood catecholamines decreased [Unknown]
  - Wrong technique in product usage process [Recovered/Resolved]
  - Anxiety [Unknown]
  - Drug dependence [Unknown]
